FAERS Safety Report 5571541-9 (Version None)
Quarter: 2007Q4

REPORT INFORMATION
  Report Type: 
  Country: None (occurrence: None)
  Receive Date: 20071221
  Receipt Date: 20071214
  Transmission Date: 20080405
  Serious: Yes (Death, Hospitalization)
  Sender: FDA-Public Use
  Company Number: US-ELI_LILLY_AND_COMPANY-US200711001842

PATIENT
  Age: 37 Year
  Sex: Male

DRUGS (8)
  1. HUMULIN R [Suspect]
     Dosage: 4 ML, EVERY HOUR
     Route: 042
     Dates: start: 20071015, end: 20071023
  2. DIPRIVAN [Concomitant]
     Indication: ANAESTHESIA
  3. DOPAMINE HCL [Concomitant]
  4. NOREPINEPHRINE [Concomitant]
     Indication: BLOOD PRESSURE
  5. VASOPRESSIN [Concomitant]
  6. VECURONIUM BROMIDE [Concomitant]
     Indication: NEUROMUSCULAR BLOCKADE
  7. VERSED [Concomitant]
  8. MORPHINE [Concomitant]

REACTIONS (2)
  - BLOOD GLUCOSE DECREASED [None]
  - MEDICATION ERROR [None]
